FAERS Safety Report 9672436 (Version 2)
Quarter: 2014Q1

REPORT INFORMATION
  Report Type: Report from Study
  Country: JP (occurrence: JP)
  Receive Date: 20131106
  Receipt Date: 20140102
  Transmission Date: 20141002
  Serious: Yes (Other)
  Sender: FDA-Public Use
  Company Number: JP-VERTEX PHARMACEUTICALS INC-2013-010909

PATIENT
  Age: 35 Year
  Sex: Male

DRUGS (10)
  1. VX-950 (TELAPREVIR) [Suspect]
     Indication: CHRONIC HEPATITIS C
     Dosage: 2250 MG, QD
     Route: 048
     Dates: start: 20120811, end: 20121102
  2. RIBAVIRIN [Suspect]
     Indication: CHRONIC HEPATITIS C
     Dosage: 600 MG, QD
     Route: 048
     Dates: start: 20120811, end: 20120824
  3. RIBAVIRIN [Suspect]
     Dosage: 400 MG, QD
     Route: 048
     Dates: start: 20120825, end: 20121109
  4. RIBAVIRIN [Suspect]
     Dosage: 600 MG, QD
     Route: 048
     Dates: start: 20121110
  5. PEGINTRON [Suspect]
     Indication: CHRONIC HEPATITIS C
     Dosage: 1.5 ?G/KG, QW
     Route: 058
     Dates: start: 20120811, end: 20130208
  6. PEGINTRON [Suspect]
     Dosage: 0.9 ?G/KG, QW
     Route: 058
     Dates: start: 20130209
  7. ZYLORIC [Concomitant]
     Dosage: 200 MG, QD
     Route: 048
     Dates: start: 20120814, end: 20121109
  8. FAMOSTAGINE-D [Concomitant]
     Dosage: 20 MG, QD
     Route: 048
     Dates: start: 20120814
  9. PRIMPERAN [Concomitant]
     Dosage: 5 MG, QD
     Route: 048
     Dates: start: 20120814, end: 20120814
  10. PRIMPERAN [Concomitant]
     Dosage: 10 MG, QD
     Route: 048
     Dates: start: 20120815

REACTIONS (1)
  - White blood cell count decreased [Recovered/Resolved]
